FAERS Safety Report 6122675-1 (Version None)
Quarter: 2009Q1

REPORT INFORMATION
  Report Type: 
  Country: None (occurrence: None)
  Receive Date: 20090318
  Receipt Date: 20090313
  Transmission Date: 20090719
  Serious: Yes (Hospitalization, Other)
  Sender: FDA-Public Use
  Company Number: US-BRISTOL-MYERS SQUIBB COMPANY-14543250

PATIENT
  Age: 54 Year
  Sex: Female
  Weight: 146 kg

DRUGS (7)
  1. ABILIFY [Suspect]
     Indication: BIPOLAR DISORDER
  2. LEXAPRO [Concomitant]
  3. SEROQUEL [Concomitant]
  4. METFORMIN HCL [Concomitant]
  5. GLYBURIDE AND METFORMIN HCL [Concomitant]
     Dosage: 1 DF=5/500MG.
  6. COZAAR [Concomitant]
  7. CHEMOTHERAPY [Concomitant]
     Dosage: EVERY 4 WEEKS FOR 5 DAYS
     Dates: start: 20080901

REACTIONS (2)
  - MYELODYSPLASTIC SYNDROME [None]
  - SCIATICA [None]
